FAERS Safety Report 8576252 (Version 9)
Quarter: 2015Q1

REPORT INFORMATION
  Report Type: Report from Study
  Country: FR (occurrence: FR)
  Receive Date: 20120523
  Receipt Date: 20150309
  Transmission Date: 20150721
  Serious: Yes (Other)
  Sender: FDA-Public Use
  Company Number: FR-ROCHE-1040938

PATIENT
  Age: 69 Year
  Sex: Female
  Weight: 75 kg

DRUGS (7)
  1. FUCIDINE [Concomitant]
     Active Substance: FUSIDIC ACID
     Indication: PROPHYLAXIS
     Route: 065
     Dates: start: 20111221, end: 20120117
  2. VASELINE PURE [Concomitant]
     Active Substance: PETROLATUM
     Indication: BASAL CELL CARCINOMA
     Route: 065
     Dates: start: 20111221
  3. PARACETAMOL [Concomitant]
     Active Substance: ACETAMINOPHEN
     Indication: ARTHRALGIA
     Route: 065
     Dates: start: 20110928
  4. VISMODEGIB [Suspect]
     Active Substance: VISMODEGIB
     Indication: BASAL CELL CARCINOMA
     Dosage: LAST DOSE PRIOR TO ADVERSE EVENT 21/DEC/2011
     Route: 048
     Dates: start: 20110706, end: 20111221
  5. MYOLASTAN [Concomitant]
     Active Substance: TETRAZEPAM
     Indication: MYALGIA
     Route: 065
     Dates: start: 20111123
  6. FUCIDINE [Concomitant]
     Active Substance: FUSIDIC ACID
     Route: 065
     Dates: start: 20120215
  7. ARANESP [Concomitant]
     Active Substance: DARBEPOETIN ALFA
     Indication: ANAEMIA
     Route: 065
     Dates: start: 20110928, end: 20111026

REACTIONS (1)
  - Squamous cell carcinoma of skin [Recovered/Resolved]

NARRATIVE: CASE EVENT DATE: 20120117
